FAERS Safety Report 11410621 (Version 2)
Quarter: 2015Q3

REPORT INFORMATION
  Report Type: Spontaneous
  Country: FI (occurrence: FI)
  Receive Date: 20150824
  Receipt Date: 20150923
  Transmission Date: 20151125
  Serious: Yes (Other)
  Sender: FDA-Public Use
  Company Number: FI-PFIZER INC-2015269553

PATIENT
  Age: 52 Year
  Sex: Male

DRUGS (6)
  1. OPAMOX [Concomitant]
     Dosage: 25 MG, AS NEEDED
  2. IBUPROFEN. [Concomitant]
     Active Substance: IBUPROFEN
     Dosage: 800 MG, 1-3 X/DAILY
  3. LYRICA [Suspect]
     Active Substance: PREGABALIN
     Indication: NEURALGIA
     Dosage: 4.5 G, DAILY
  4. VENLAFAXINE [Concomitant]
     Active Substance: VENLAFAXINE HYDROCHLORIDE
     Dosage: 150 MG, 1X/DAY
  5. SIRDALUD [Concomitant]
     Active Substance: TIZANIDINE
     Dosage: 6 MG, AS NEEDED
  6. PARACETAMOL [Concomitant]
     Active Substance: ACETAMINOPHEN
     Dosage: 1 G, 1-3X/DAILY AS NEEDED

REACTIONS (2)
  - Drug abuse [Unknown]
  - Intentional overdose [Unknown]
